FAERS Safety Report 21520749 (Version 5)
Quarter: 2024Q4

REPORT INFORMATION
  Report Type: Report from Study
  Country: US (occurrence: US)
  Receive Date: 20221028
  Receipt Date: 20241015
  Transmission Date: 20250115
  Serious: No
  Sender: NOVARTIS
  Company Number: US-NOVARTISTESTPH-NVSC2022US241672

PATIENT
  Age: 73 Year
  Sex: Female

DRUGS (1)
  1. ENTRESTO [Suspect]
     Active Substance: SACUBITRIL\VALSARTAN
     Indication: Cardiac failure
     Dosage: 1 DOSAGE FORM, BID (49/51 MG)
     Route: 048
     Dates: start: 20220815

REACTIONS (5)
  - Weight increased [Recovering/Resolving]
  - Diverticulum intestinal [Recovered/Resolved]
  - Feeling cold [Recovered/Resolved]
  - Hypotension [Not Recovered/Not Resolved]
  - Cough [Recovering/Resolving]

NARRATIVE: CASE EVENT DATE: 20220801
